FAERS Safety Report 23717761 (Version 4)
Quarter: 2024Q2

REPORT INFORMATION
  Report Type: Report from Study
  Country: BR (occurrence: BR)
  Receive Date: 20240408
  Receipt Date: 20240426
  Transmission Date: 20240716
  Serious: Yes (Other)
  Sender: FDA-Public Use
  Company Number: BR-JNJFOC-20240402324

PATIENT
  Age: 34 Year
  Sex: Female
  Weight: 80 kg

DRUGS (12)
  1. GOLIMUMAB [Suspect]
     Active Substance: GOLIMUMAB
     Indication: Ankylosing spondylitis
     Route: 058
  2. GOLIMUMAB [Suspect]
     Active Substance: GOLIMUMAB
  3. GOLIMUMAB [Suspect]
     Active Substance: GOLIMUMAB
  4. GOLIMUMAB [Suspect]
     Active Substance: GOLIMUMAB
  5. GOLIMUMAB [Suspect]
     Active Substance: GOLIMUMAB
  6. GOLIMUMAB [Suspect]
     Active Substance: GOLIMUMAB
  7. SIMPONI [Suspect]
     Active Substance: GOLIMUMAB
     Indication: Ankylosing spondylitis
     Route: 058
  8. SIMPONI [Suspect]
     Active Substance: GOLIMUMAB
  9. SIMPONI [Suspect]
     Active Substance: GOLIMUMAB
  10. SIMPONI [Suspect]
     Active Substance: GOLIMUMAB
  11. SIMPONI [Suspect]
     Active Substance: GOLIMUMAB
  12. SIMPONI [Suspect]
     Active Substance: GOLIMUMAB

REACTIONS (2)
  - Lyme disease [Unknown]
  - Drug ineffective [Unknown]
